FAERS Safety Report 8953191 (Version 1)
Quarter: 2012Q4

REPORT INFORMATION
  Report Type: 
  Country: US (occurrence: US)
  Receive Date: 20121206
  Receipt Date: 20121206
  Transmission Date: 20130627
  Serious: No
  Sender: FDA-Public Use
  Company Number: US-BAYER-2012-124920

PATIENT
  Age: 47 Year
  Sex: Female
  Weight: 63.04 kg

DRUGS (13)
  1. BETASERON [Suspect]
     Dosage: 0.25 mg, QOD
     Route: 058
  2. ULTRAM [Concomitant]
     Dosage: UNK
  3. ANTIVERT [Concomitant]
  4. CARDURA [Concomitant]
  5. ZYRTEC [Concomitant]
  6. NEURONTIN [Concomitant]
  7. AZITHROMYCIN [Concomitant]
  8. FLONASE [Concomitant]
  9. VENTOLIN [Concomitant]
  10. LEXAPRO [Concomitant]
  11. AMANTADINE [Concomitant]
  12. TYLENOL 8 HOUR [Concomitant]
     Dosage: 8 HR
  13. MELATONIN [Concomitant]

REACTIONS (2)
  - Upper respiratory tract infection [Unknown]
  - Upper respiratory tract infection [Unknown]
